FAERS Safety Report 9859208 (Version 2)
Quarter: 2014Q1

REPORT INFORMATION
  Report Type: Spontaneous
  Country: US (occurrence: US)
  Receive Date: 20140131
  Receipt Date: 20140205
  Transmission Date: 20141002
  Serious: Yes (Death, Hospitalization, Other)
  Sender: FDA-Public Use
  Company Number: US-BRISTOL-MYERS SQUIBB COMPANY-20090411

PATIENT
  Age: 54 Year
  Sex: Male
  Weight: 114.96 kg

DRUGS (3)
  1. YERVOY [Suspect]
  2. DENOSUMAB [Concomitant]
     Dosage: 1DF: INJECTION
  3. CARDIZEM [Concomitant]

REACTIONS (14)
  - Death [Fatal]
  - Melanoma recurrent [Unknown]
  - Jaundice [Unknown]
  - Haemoptysis [Unknown]
  - Liver function test abnormal [Not Recovered/Not Resolved]
  - Atrial fibrillation [Unknown]
  - Bile duct stenosis [Unknown]
  - Cholelithiasis [Unknown]
  - Insomnia [Unknown]
  - Dyspnoea [Unknown]
  - Local swelling [Unknown]
  - Depression [Unknown]
  - Lymphoedema [Unknown]
  - Fatigue [Unknown]
